FAERS Safety Report 6283807-8 (Version None)
Quarter: 2009Q3

REPORT INFORMATION
  Report Type: 
  Country: None (occurrence: None)
  Receive Date: 20090724
  Receipt Date: 20090714
  Transmission Date: 20100115
  Serious: Yes (Hospitalization, Other)
  Sender: FDA-Public Use
  Company Number: US-PFIZER INC-2009243970

PATIENT
  Age: 33 Year
  Sex: Male
  Weight: 72.562 kg

DRUGS (2)
  1. CHANTIX [Suspect]
     Indication: SMOKING CESSATION THERAPY
     Dosage: FREQUENCY: 2X/DAY
     Route: 048
     Dates: start: 20090601, end: 20090714
  2. XANAX [Suspect]
     Indication: STRESS
     Dosage: FREQUENCY: EVERYDAY; AS NEEDED
     Route: 048
     Dates: end: 20090714

REACTIONS (3)
  - DEPRESSION [None]
  - OVERDOSE [None]
  - SUICIDE ATTEMPT [None]
